FAERS Safety Report 9192649 (Version 2)
Quarter: 2013Q2

REPORT INFORMATION
  Report Type: Spontaneous
  Country: US (occurrence: None)
  Receive Date: 20130325
  Receipt Date: 20130411
  Transmission Date: 20140414
  Serious: Yes (Hospitalization, Other)
  Sender: FDA-Public Use
  Company Number: 2013STPI000093

PATIENT
  Age: 71 Year
  Sex: Female
  Weight: 101.6 kg

DRUGS (5)
  1. PROCARBAZINE [Suspect]
     Indication: LYMPHOMA
     Route: 048
     Dates: start: 20130126, end: 201303
  2. PROCARBAZINE [Suspect]
     Indication: PULMONARY FIBROSIS
     Route: 048
     Dates: start: 20130126, end: 201303
  3. MUSTARGEN [Suspect]
     Indication: LYMPHOMA
     Dates: end: 201303
  4. ONCOVIN [Suspect]
     Indication: LYMPHOMA
     Dates: end: 201303
  5. PREDNISONE [Suspect]
     Indication: LYMPHOMA
     Dates: end: 201303

REACTIONS (4)
  - Blood count abnormal [None]
  - Deep vein thrombosis [None]
  - Anaemia [None]
  - Refusal of treatment by patient [None]
